FAERS Safety Report 7536618-7 (Version None)
Quarter: 2011Q2

REPORT INFORMATION
  Report Type: 
  Country: None (occurrence: None)
  Receive Date: 20110608
  Receipt Date: 20110608
  Transmission Date: 20111010
  Serious: Yes (Hospitalization)
  Sender: FDA-Public Use
  Company Number: None

PATIENT
  Age: 43 Year
  Sex: Female
  Weight: 99.7913 kg

DRUGS (1)
  1. ILOPERIDONE 6MG NOVARTIS [Suspect]
     Indication: SCHIZOPHRENIA
     Dosage: 6MG BID PO
     Route: 048
     Dates: start: 20110415, end: 20110506

REACTIONS (1)
  - GENERALISED OEDEMA [None]
